FAERS Safety Report 25315588 (Version 1)
Quarter: 2025Q2

REPORT INFORMATION
  Report Type: Report from Study
  Country: MX (occurrence: MX)
  Receive Date: 20250514
  Receipt Date: 20250514
  Transmission Date: 20250716
  Serious: Yes (Other)
  Sender: ALEXION PHARMACEUTICALS
  Company Number: MX-AstraZeneca-CH-00868124A

PATIENT
  Weight: 77 kg

DRUGS (1)
  1. DURVALUMAB [Suspect]
     Active Substance: DURVALUMAB
     Indication: Hepatic cancer
     Dosage: 1500 MILLIGRAM, Q4W

REACTIONS (7)
  - General physical health deterioration [Unknown]
  - Pyrexia [Unknown]
  - Hallucination [Unknown]
  - Mobility decreased [Unknown]
  - Cerebral disorder [Unknown]
  - Incoherent [Unknown]
  - Drug resistance [Unknown]
